FAERS Safety Report 8806192 (Version 1)
Quarter: 2012Q4

REPORT INFORMATION
  Report Type: Spontaneous
  Country: US (occurrence: None)
  Receive Date: 20120919
  Receipt Date: 20120919
  Transmission Date: 20130627
  Serious: Yes (Life-Threatening, Other)
  Sender: FDA-Public Use
  Company Number: None

PATIENT
  Age: 50 Year
  Sex: Male
  Weight: 97.52 kg

DRUGS (2)
  1. VIMPAT [Suspect]
     Dosage: 2 tablets 2 x^s a day AM/PM po
     Route: 048
     Dates: start: 20101203, end: 20110102
  2. VIMPAT [Suspect]
     Dosage: 1 tablet @ PM only po
     Route: 048
     Dates: start: 20110104, end: 20120919

REACTIONS (3)
  - Memory impairment [None]
  - Dysphemia [None]
  - Rash [None]
